FAERS Safety Report 5798712-0 (Version None)
Quarter: 2008Q2

REPORT INFORMATION
  Report Type: 
  Country: None (occurrence: None)
  Receive Date: 20080630
  Receipt Date: 20080612
  Transmission Date: 20081010
  Serious: Yes (Life-Threatening, Hospitalization)
  Sender: FDA-Public Use
  Company Number: 2008S1008540

PATIENT
  Age: 69 Year
  Sex: Male

DRUGS (9)
  1. CLOPIDOGREL (CLOPIDOGREL) DOSE, FORM, ROUTE AND FREQUENCY 600 MG;UNKNO [Suspect]
     Indication: PREOPERATIVE CARE
     Dosage: 75 MG;DAILY
  2. CLOPIDOGREL (CLOPIDOGREL) DOSE, FORM, ROUTE AND FREQUENCY 600 MG;UNKNO [Suspect]
     Indication: THROMBOSIS PROPHYLAXIS
     Dosage: 75 MG;DAILY
  3. ABCIXIMAB (ABCIXIMAB) [Concomitant]
  4. ASPIRIN [Concomitant]
  5. ETHAMBUTOL HYDROCHLORIDE [Concomitant]
  6. CLARITHROMYCIN [Suspect]
     Indication: MYCOBACTERIUM AVIUM COMPLEX INFECTION
     Dates: start: 20030501
  7. RIFAMPICIN [Suspect]
     Indication: MYCOBACTERIUM AVIUM COMPLEX INFECTION
     Dates: start: 20030501
  8. ETHAMBUTOL HCL [Suspect]
     Indication: MYCOBACTERIUM AVIUM COMPLEX INFECTION
     Dates: start: 20030501
  9. RIFAMPICIN [Concomitant]

REACTIONS (4)
  - ACUTE MYOCARDIAL INFARCTION [None]
  - DRUG INTERACTION [None]
  - DRUG RESISTANCE [None]
  - THROMBOSIS IN DEVICE [None]
